FAERS Safety Report 16790104 (Version 4)
Quarter: 2021Q2

REPORT INFORMATION
  Report Type: Spontaneous
  Country: US (occurrence: US)
  Receive Date: 20190910
  Receipt Date: 20210512
  Transmission Date: 20210716
  Serious: Yes (Other)
  Sender: FDA-Public Use
  Company Number: US-SA-2019SA251982

PATIENT
  Age: 60 Year
  Sex: Female

DRUGS (1)
  1. KEVZARA [Suspect]
     Active Substance: SARILUMAB
     Indication: RHEUMATOID ARTHRITIS
     Dosage: 200 MG, QOW
     Route: 058
     Dates: start: 20190116

REACTIONS (3)
  - Exposure to toxic agent [Not Recovered/Not Resolved]
  - Rheumatoid arthritis [Unknown]
  - Surgery [Unknown]

NARRATIVE: CASE EVENT DATE: 2019
